FAERS Safety Report 8761821 (Version 2)
Quarter: 2012Q4

REPORT INFORMATION
  Report Type: Spontaneous
  Country: US (occurrence: None)
  Receive Date: 20120823
  Receipt Date: 20121010
  Transmission Date: 20130627
  Serious: Yes (Death)
  Sender: FDA-Public Use
  Company Number: ADR-2012-01541

PATIENT
  Sex: Male

DRUGS (2)
  1. LIORESAL INTRATHECAL [Suspect]
     Dosage: 800 mcg/day
  2. LIORESAL INTRATHECAL [Suspect]
     Dosage: 800 mcg/day

REACTIONS (3)
  - Death [None]
  - Cardiac arrest [None]
  - Procedural complication [None]
